FAERS Safety Report 15412401 (Version 9)
Quarter: 2019Q2

REPORT INFORMATION
  Report Type: Report from Study
  Country: CN (occurrence: CN)
  Receive Date: 20180921
  Receipt Date: 20190502
  Transmission Date: 20190711
  Serious: Yes (Hospitalization)
  Sender: FDA-Public Use
  Company Number: CN-ROCHE-2184196

PATIENT
  Age: 44 Year
  Sex: Female
  Weight: 64 kg

DRUGS (84)
  1. CARBOPLATIN. [Suspect]
     Active Substance: CARBOPLATIN
     Indication: OVARIAN CANCER
     Dosage: DATE OF MOST RECENT DOSE OF CARBOPLATIN OF 600 MG PRIOR TO AE ONSET 21/AUG/2018?AT A DOSE TO ACHIEVE
     Route: 042
     Dates: start: 20180706
  2. DEXAMETHASONE ACETATE [Concomitant]
     Active Substance: DEXAMETHASONE ACETATE
     Route: 048
     Dates: start: 20180729, end: 20180730
  3. LANSOPRAZOLE. [Concomitant]
     Active Substance: LANSOPRAZOLE
     Route: 065
     Dates: start: 20190103, end: 20190103
  4. LANSOPRAZOLE. [Concomitant]
     Active Substance: LANSOPRAZOLE
     Route: 065
     Dates: start: 20190403, end: 20190403
  5. AMIFOSTINE. [Concomitant]
     Active Substance: AMIFOSTINE
     Route: 065
     Dates: start: 20180918, end: 20180918
  6. POTASSIUM CHLORIDE. [Concomitant]
     Active Substance: POTASSIUM CHLORIDE
     Route: 065
     Dates: start: 20190125, end: 20190125
  7. ESTAZOLAM. [Concomitant]
     Active Substance: ESTAZOLAM
     Route: 065
     Dates: start: 20180731, end: 20180731
  8. POVIDONE-IODINE. [Concomitant]
     Active Substance: POVIDONE-IODINE
     Route: 065
     Dates: start: 20181008, end: 20181008
  9. LANSOPRAZOLE. [Concomitant]
     Active Substance: LANSOPRAZOLE
     Route: 065
     Dates: start: 20180918, end: 20180918
  10. AMIFOSTINE. [Concomitant]
     Active Substance: AMIFOSTINE
     Route: 065
     Dates: start: 20180730, end: 20180730
  11. AMIFOSTINE. [Concomitant]
     Active Substance: AMIFOSTINE
     Route: 065
     Dates: start: 20181120, end: 20181120
  12. POTASSIUM CHLORIDE. [Concomitant]
     Active Substance: POTASSIUM CHLORIDE
     Route: 065
     Dates: start: 20190124, end: 20190125
  13. EPIMEDIUM [Concomitant]
     Route: 065
     Dates: start: 20180823, end: 20180908
  14. AZASETRON HYDROCHLORIDE [Concomitant]
     Active Substance: AZASETRON HYDROCHLORIDE
     Route: 065
     Dates: start: 20180821, end: 20180821
  15. ESTAZOLAM. [Concomitant]
     Active Substance: ESTAZOLAM
     Route: 065
     Dates: start: 20190103, end: 20190103
  16. DEXAMETHASONE SODIUM PHOSPHATE. [Concomitant]
     Active Substance: DEXAMETHASONE SODIUM PHOSPHATE
     Route: 065
     Dates: start: 20190102, end: 20190105
  17. FERROUS SUCCINATE [Concomitant]
     Active Substance: FERROUS SUCCINATE
     Route: 065
     Dates: start: 20190104, end: 20190114
  18. VITAMIN C [Concomitant]
     Active Substance: ASCORBIC ACID
     Route: 065
     Dates: start: 20190407
  19. ATEZOLIZUMAB. [Suspect]
     Active Substance: ATEZOLIZUMAB
     Indication: OVARIAN CANCER
     Dosage: DATE OF MOST RECENT DOSE OF BLINDED ATEZOLIZUMAB PRIOR TO SAE ONSET: 21/AUG/2018?ON 20/NOV/2018, REC
     Route: 041
     Dates: start: 20180706
  20. BEVACIZUMAB. [Suspect]
     Active Substance: BEVACIZUMAB
     Indication: OVARIAN CANCER
     Dosage: DATE OF MOST RECENT DOSE OF BEVACIZUMAB OF 967.5 MG PRIOR TO AE ONSET 21/AUG/2018?ON 20/NOV/2018, RE
     Route: 042
     Dates: start: 20180730
  21. DEXAMETHASONE ACETATE [Concomitant]
     Active Substance: DEXAMETHASONE ACETATE
     Route: 048
     Dates: start: 20180820, end: 20180821
  22. DEXAMETHASONE ACETATE [Concomitant]
     Active Substance: DEXAMETHASONE ACETATE
     Route: 065
     Dates: start: 20181029, end: 20181030
  23. LANSOPRAZOLE. [Concomitant]
     Active Substance: LANSOPRAZOLE
     Route: 065
     Dates: start: 20180821, end: 20180821
  24. LANSOPRAZOLE. [Concomitant]
     Active Substance: LANSOPRAZOLE
     Route: 065
     Dates: start: 20180730, end: 20180730
  25. ESTAZOLAM. [Concomitant]
     Active Substance: ESTAZOLAM
     Route: 065
     Dates: start: 20180716, end: 20180730
  26. ESTAZOLAM. [Concomitant]
     Active Substance: ESTAZOLAM
     Route: 065
     Dates: start: 20190123, end: 20190123
  27. ESTAZOLAM. [Concomitant]
     Active Substance: ESTAZOLAM
     Route: 065
     Dates: start: 20190313, end: 20190313
  28. LEUCOGEN [Concomitant]
     Active Substance: LEUCOGEN
     Indication: BONE MARROW FAILURE
     Route: 065
     Dates: start: 20180912, end: 20181128
  29. NIFEDIPINE. [Concomitant]
     Active Substance: NIFEDIPINE
     Route: 065
     Dates: start: 20181211
  30. OMEPRAZOLE SODIUM [Concomitant]
     Active Substance: OMEPRAZOLE SODIUM
     Route: 065
     Dates: start: 20181217, end: 20181217
  31. SPIRONOLACTONE. [Concomitant]
     Active Substance: SPIRONOLACTONE
     Indication: HYPERALDOSTERONISM
     Route: 065
     Dates: start: 20180611
  32. DEXAMETHASONE ACETATE [Concomitant]
     Active Substance: DEXAMETHASONE ACETATE
     Route: 048
     Dates: start: 20181008, end: 20181009
  33. LANSOPRAZOLE. [Concomitant]
     Active Substance: LANSOPRAZOLE
     Route: 065
     Dates: start: 20190124, end: 20190124
  34. LANSOPRAZOLE. [Concomitant]
     Active Substance: LANSOPRAZOLE
     Route: 065
     Dates: start: 20190313, end: 20190313
  35. AMIFOSTINE. [Concomitant]
     Active Substance: AMIFOSTINE
     Route: 065
     Dates: start: 20190313, end: 20190313
  36. AMIFOSTINE. [Concomitant]
     Active Substance: AMIFOSTINE
     Route: 065
     Dates: start: 20181009, end: 20181009
  37. AMIFOSTINE. [Concomitant]
     Active Substance: AMIFOSTINE
     Route: 065
     Dates: start: 20181030, end: 20181030
  38. POTASSIUM CHLORIDE. [Concomitant]
     Active Substance: POTASSIUM CHLORIDE
     Route: 065
     Dates: start: 20180821, end: 20180821
  39. ZIZIPHUS JUJUBA [Concomitant]
     Indication: BONE MARROW FAILURE
     Route: 065
     Dates: start: 20180801, end: 20180818
  40. EPIMEDIUM [Concomitant]
     Indication: BONE MARROW FAILURE
     Route: 065
     Dates: start: 20180801, end: 20180818
  41. AZASETRON HYDROCHLORIDE [Concomitant]
     Active Substance: AZASETRON HYDROCHLORIDE
     Route: 065
     Dates: start: 20180730, end: 20180730
  42. AZASETRON HYDROCHLORIDE [Concomitant]
     Active Substance: AZASETRON HYDROCHLORIDE
     Route: 065
     Dates: start: 20181030, end: 20181030
  43. AZASETRON HYDROCHLORIDE [Concomitant]
     Active Substance: AZASETRON HYDROCHLORIDE
     Route: 065
     Dates: start: 20181120, end: 20181120
  44. ESTAZOLAM. [Concomitant]
     Active Substance: ESTAZOLAM
     Route: 065
     Dates: start: 20181029, end: 20181030
  45. ESTAZOLAM. [Concomitant]
     Active Substance: ESTAZOLAM
     Route: 065
     Dates: start: 20190103, end: 20190103
  46. ESTAZOLAM. [Concomitant]
     Active Substance: ESTAZOLAM
     Route: 065
     Dates: start: 20190220, end: 20190220
  47. MEGLUMINE ADENOSINE CYCLOPHOSPHATE [Concomitant]
     Active Substance: ADENOSINE CYCLIC PHOSPHATE MEGLUMINE
     Indication: ARRHYTHMIA
     Route: 065
     Dates: start: 20181217, end: 20181217
  48. PACLITAXEL. [Suspect]
     Active Substance: PACLITAXEL
     Indication: OVARIAN CANCER
     Dosage: DATE OF MOST RECENT DOSE OF PACLITAXEL OF 270 MG PRIOR TO AE ONSET 21/AUG/2018?ON 20/NOV/2018, RECEI
     Route: 042
     Dates: start: 20180706
  49. AMIFOSTINE. [Concomitant]
     Active Substance: AMIFOSTINE
     Route: 065
     Dates: start: 20190220, end: 20190220
  50. POTASSIUM CHLORIDE. [Concomitant]
     Active Substance: POTASSIUM CHLORIDE
     Route: 065
     Dates: start: 20180918, end: 20180918
  51. AZASETRON HYDROCHLORIDE [Concomitant]
     Active Substance: AZASETRON HYDROCHLORIDE
     Route: 065
     Dates: start: 20180918, end: 20180918
  52. ESTAZOLAM. [Concomitant]
     Active Substance: ESTAZOLAM
     Route: 065
     Dates: start: 20181221, end: 20181227
  53. DEXAMETHASONE SODIUM PHOSPHATE. [Concomitant]
     Active Substance: DEXAMETHASONE SODIUM PHOSPHATE
     Indication: MOUTH ULCERATION
     Route: 065
     Dates: start: 20180915, end: 20180915
  54. AMIKACIN SULFATE. [Concomitant]
     Active Substance: AMIKACIN SULFATE
     Route: 065
     Dates: start: 20190102, end: 20190102
  55. LIDOCAINE HYDROCHLORIDE. [Concomitant]
     Active Substance: LIDOCAINE HYDROCHLORIDE
     Indication: MOUTH ULCERATION
     Route: 065
     Dates: start: 20180915, end: 20180915
  56. LIDOCAINE HYDROCHLORIDE. [Concomitant]
     Active Substance: LIDOCAINE HYDROCHLORIDE
     Route: 065
     Dates: start: 20181008, end: 20181008
  57. IRBESARTAN. [Concomitant]
     Active Substance: IRBESARTAN
     Route: 065
     Dates: start: 20181225
  58. HYDROCHLOROTHIAZIDE. [Concomitant]
     Active Substance: HYDROCHLOROTHIAZIDE
     Route: 065
     Dates: start: 20181225
  59. VITAMIN B6 [Concomitant]
     Active Substance: PYRIDOXINE HYDROCHLORIDE
     Route: 065
     Dates: start: 20181217, end: 20181217
  60. LANSOPRAZOLE. [Concomitant]
     Active Substance: LANSOPRAZOLE
     Route: 065
     Dates: start: 20181009, end: 20181009
  61. LANSOPRAZOLE. [Concomitant]
     Active Substance: LANSOPRAZOLE
     Route: 065
     Dates: start: 20181120, end: 20181120
  62. POTASSIUM CHLORIDE. [Concomitant]
     Active Substance: POTASSIUM CHLORIDE
     Route: 065
     Dates: start: 20180730, end: 20180730
  63. POTASSIUM CHLORIDE. [Concomitant]
     Active Substance: POTASSIUM CHLORIDE
     Route: 065
     Dates: start: 20190125, end: 20190130
  64. POTASSIUM CHLORIDE. [Concomitant]
     Active Substance: POTASSIUM CHLORIDE
     Route: 065
     Dates: start: 20190404, end: 20190404
  65. AZASETRON HYDROCHLORIDE [Concomitant]
     Active Substance: AZASETRON HYDROCHLORIDE
     Route: 065
     Dates: start: 20181211, end: 20181211
  66. LEUCOGEN [Concomitant]
     Active Substance: LEUCOGEN
     Route: 065
     Dates: start: 20181217, end: 20190123
  67. AMIKACIN SULFATE. [Concomitant]
     Active Substance: AMIKACIN SULFATE
     Indication: MOUTH ULCERATION
     Route: 065
     Dates: start: 20180915, end: 20180915
  68. LIDOCAINE HYDROCHLORIDE. [Concomitant]
     Active Substance: LIDOCAINE HYDROCHLORIDE
     Route: 065
     Dates: start: 20190102, end: 20190114
  69. PARACETAMOL [Concomitant]
     Active Substance: ACETAMINOPHEN
     Indication: UPPER RESPIRATORY TRACT INFECTION
     Route: 065
     Dates: start: 20190214, end: 20190217
  70. CALCIUM GLUCONATE. [Concomitant]
     Active Substance: CALCIUM GLUCONATE
     Indication: MINERAL SUPPLEMENTATION
     Route: 065
     Dates: start: 20190404, end: 20190404
  71. LANSOPRAZOLE. [Concomitant]
     Active Substance: LANSOPRAZOLE
     Route: 065
     Dates: start: 20181030, end: 20181030
  72. LANSOPRAZOLE. [Concomitant]
     Active Substance: LANSOPRAZOLE
     Route: 065
     Dates: start: 20190220, end: 20190220
  73. SODIUM CHLORIDE. [Concomitant]
     Active Substance: SODIUM CHLORIDE
     Route: 065
     Dates: start: 20180821, end: 20180821
  74. ESTAZOLAM. [Concomitant]
     Active Substance: ESTAZOLAM
     Route: 065
     Dates: start: 20190213, end: 20190213
  75. LEUCOGEN [Concomitant]
     Active Substance: LEUCOGEN
     Route: 065
     Dates: start: 20190125
  76. LANSOPRAZOLE. [Concomitant]
     Active Substance: LANSOPRAZOLE
     Route: 065
     Dates: start: 20181211, end: 20181211
  77. AMIFOSTINE. [Concomitant]
     Active Substance: AMIFOSTINE
     Route: 065
     Dates: start: 20180821, end: 20180821
  78. AMIFOSTINE. [Concomitant]
     Active Substance: AMIFOSTINE
     Route: 065
     Dates: start: 20190403, end: 20190403
  79. POTASSIUM CHLORIDE. [Concomitant]
     Active Substance: POTASSIUM CHLORIDE
     Route: 065
     Dates: start: 20181009, end: 20181009
  80. POTASSIUM CHLORIDE. [Concomitant]
     Active Substance: POTASSIUM CHLORIDE
     Route: 065
     Dates: start: 20181030, end: 20181030
  81. POTASSIUM CHLORIDE. [Concomitant]
     Active Substance: POTASSIUM CHLORIDE
     Route: 065
     Dates: start: 20181211, end: 20181211
  82. ZIZIPHUS JUJUBA [Concomitant]
     Route: 065
     Dates: start: 20180823, end: 20180908
  83. ESTAZOLAM. [Concomitant]
     Active Substance: ESTAZOLAM
     Route: 065
     Dates: start: 20180910, end: 20180911
  84. CLOSTRIDIUM BUTYRICUM [Concomitant]
     Active Substance: CLOSTRIDIUM BUTYRICUM SPORES STRAIN M-55
     Indication: INTESTINAL OBSTRUCTION
     Route: 065
     Dates: start: 20181217, end: 20181219

REACTIONS (5)
  - Hypothyroidism [Recovered/Resolved]
  - Liver injury [Recovered/Resolved]
  - Hypertension [Not Recovered/Not Resolved]
  - Ileus [Recovered/Resolved]
  - Hyperthyroidism [Recovered/Resolved]

NARRATIVE: CASE EVENT DATE: 20180828
